FAERS Safety Report 26036847 (Version 1)
Quarter: 2025Q4

REPORT INFORMATION
  Report Type: Other
  Country: US (occurrence: US)
  Receive Date: 20251112
  Receipt Date: 20251112
  Transmission Date: 20260118
  Serious: No
  Sender: PARATEK PHARMACEUTICALS
  Company Number: US-PARATEK PHARMACEUTICALS, INC.-2024PTK00077

PATIENT
  Sex: Female

DRUGS (8)
  1. OMADACYCLINE [Suspect]
     Active Substance: OMADACYCLINE
     Indication: Mycobacterium abscessus infection
     Dosage: 300 MG, 1X/DAY
  2. OMADACYCLINE [Suspect]
     Active Substance: OMADACYCLINE
     Indication: Pneumonia bacterial
  3. ARIKAYCE [Suspect]
     Active Substance: AMIKACIN
     Indication: Mycobacterium abscessus infection
     Dosage: UNK UNK, 1X/DAY
  4. ARIKAYCE [Suspect]
     Active Substance: AMIKACIN
     Indication: Pneumonia bacterial
  5. AZITHROMYCIN [Suspect]
     Active Substance: AZITHROMYCIN
     Indication: Mycobacterium abscessus infection
     Dosage: 500 MG, 1X/DAY
  6. AZITHROMYCIN [Suspect]
     Active Substance: AZITHROMYCIN
     Indication: Pneumonia bacterial
  7. LINEZOLID [Suspect]
     Active Substance: LINEZOLID
     Indication: Mycobacterium abscessus infection
     Dosage: 600 MG, 1X/DAY
  8. LINEZOLID [Suspect]
     Active Substance: LINEZOLID
     Indication: Pneumonia bacterial

REACTIONS (2)
  - Lung disorder [Unknown]
  - Drug ineffective for unapproved indication [Unknown]
